FAERS Safety Report 8400055-3 (Version None)
Quarter: 2012Q2

REPORT INFORMATION
  Report Type: 
  Country: None (occurrence: None)
  Receive Date: 20120531
  Receipt Date: 20120521
  Transmission Date: 20120825
  Serious: Yes (Other)
  Sender: FDA-Public Use
  Company Number: JP-VERTEX PHARMACEUTICALS INC.-AE-2012-007736

PATIENT
  Age: 48 Year
  Sex: Male

DRUGS (11)
  1. PEGINTERFERON ALFA-2B [Concomitant]
     Route: 051
     Dates: start: 20120218
  2. RIBAVIRIN [Concomitant]
     Route: 048
     Dates: start: 20120218
  3. TELAVIC (TELAPREVIR) [Suspect]
     Route: 048
     Dates: start: 20120221
  4. BASEN OD [Concomitant]
     Route: 048
  5. ACTOS [Concomitant]
     Route: 048
  6. ALLOPURINOL [Concomitant]
     Route: 048
  7. MUCODYNE [Concomitant]
     Route: 048
  8. SYMBICORT [Concomitant]
     Route: 048
     Dates: start: 20120302
  9. TELAVIC (TELAPREVIR) [Suspect]
     Indication: HEPATITIS C
     Route: 048
     Dates: start: 20120218, end: 20120220
  10. MONTELUKAST SODIUM [Concomitant]
     Route: 048
     Dates: start: 20120302
  11. URSO 250 [Concomitant]
     Route: 048

REACTIONS (1)
  - RENAL IMPAIRMENT [None]
